FAERS Safety Report 10022416 (Version 1)
Quarter: 2014Q1

REPORT INFORMATION
  Report Type: Spontaneous
  Country: US (occurrence: US)
  Receive Date: 20140319
  Receipt Date: 20140319
  Transmission Date: 20141002
  Serious: Yes (Hospitalization)
  Sender: FDA-Public Use
  Company Number: US-PFIZER INC-2014078799

PATIENT
  Age: 59 Year
  Sex: Female
  Weight: 63.49 kg

DRUGS (7)
  1. LYRICA [Suspect]
     Indication: DIABETIC NEUROPATHY
     Dosage: 150 MG, 1X/DAY
  2. LYRICA [Suspect]
     Dosage: 75 MG, 1X/DAY
  3. CLOPIDOGREL [Concomitant]
     Dosage: 75 MG, 1X/DAY
     Dates: start: 201403
  4. NOVOLOG [Concomitant]
     Dosage: UNK [5 (UNITS UNKNOWN) MORNING, 10 (UNITS UNKNOWN) AFTERNOON AND 15 (UNITS UNKNOWN) NIGHT], 3X/DAY
  5. VYTORIN [Concomitant]
     Dosage: UNK
  6. LANTUS [Concomitant]
     Dosage: 25 MG, 2X/DAY
  7. REQUIP [Concomitant]
     Dosage: 4 MG, 1X/DAY

REACTIONS (1)
  - Cardiac disorder [Unknown]
